FAERS Safety Report 5601002-X (Version None)
Quarter: 2008Q1

REPORT INFORMATION
  Report Type: 
  Country: None (occurrence: None)
  Receive Date: 20080118
  Receipt Date: 20080103
  Transmission Date: 20080703
  Serious: Yes (Hospitalization, Other)
  Sender: FDA-Public Use
  Company Number: MPS1-1000004

PATIENT
  Age: 4 Year
  Sex: Male
  Weight: 15.2 kg

DRUGS (1)
  1. ALDURAZYME [Suspect]
     Indication: MUCOPOLYSACCHARIDOSIS I
     Dosage: 100 U/KG, QW, INTRAVENOUS
     Route: 042
     Dates: start: 20050823, end: 20080102

REACTIONS (4)
  - ADENOIDAL DISORDER [None]
  - IIIRD NERVE PARALYSIS [None]
  - NEUROLOGICAL SYMPTOM [None]
  - VITH NERVE PARALYSIS [None]
